FAERS Safety Report 7056640-7 (Version None)
Quarter: 2010Q4

REPORT INFORMATION
  Report Type: 
  Country: None (occurrence: None)
  Receive Date: 20101009
  Receipt Date: 20100921
  Transmission Date: 20110411
  Serious: Yes (Other)
  Sender: FDA-Public Use
  Company Number: GAM-269-10-PT

PATIENT
  Age: 85 Year
  Sex: Female

DRUGS (6)
  1. OCTAGAM [Suspect]
     Indication: ANAEMIA HAEMOLYTIC AUTOIMMUNE
     Dosage: 30 G I.V.
     Route: 042
     Dates: start: 20100707, end: 20100708
  2. FUROSEMIDE [Concomitant]
  3. PREDNISOLONE [Concomitant]
  4. ESOMEPRAZOLE [Concomitant]
  5. ALPRAZOLAM [Concomitant]
  6. ACETYLSALICYLIC ACID [Concomitant]

REACTIONS (2)
  - HEMIANOPIA [None]
  - HEMIPARESIS [None]
